FAERS Safety Report 10523378 (Version 2)
Quarter: 2014Q4

REPORT INFORMATION
  Report Type: Report from Study
  Country: US (occurrence: US)
  Receive Date: 20141016
  Receipt Date: 20141016
  Transmission Date: 20150528
  Serious: Yes (Other)
  Sender: FDA-Public Use
  Company Number: US-ASTRAZENECA-2014SE31372

PATIENT
  Age: 843 Month
  Sex: Female
  Weight: 53.5 kg

DRUGS (17)
  1. SEROQUEL [Suspect]
     Active Substance: QUETIAPINE FUMARATE
     Route: 048
  2. EFFEXOR XR [Suspect]
     Active Substance: VENLAFAXINE HYDROCHLORIDE
     Indication: DEPRESSION
     Route: 048
     Dates: start: 201408
  3. EFFEXOR XR [Suspect]
     Active Substance: VENLAFAXINE HYDROCHLORIDE
     Indication: DEPRESSION
     Dosage: GENERIC
     Route: 065
  4. MONTELUKAST [Concomitant]
     Active Substance: MONTELUKAST SODIUM
     Indication: ASTHMA
     Route: 048
  5. GELNIQUE [Concomitant]
     Active Substance: OXYBUTYNIN\OXYBUTYNIN CHLORIDE
     Dosage: IN THE MORNING
  6. COQ10 [Concomitant]
     Active Substance: UBIDECARENONE
     Route: 048
  7. DITROPAN [Suspect]
     Active Substance: OXYBUTYNIN CHLORIDE
     Route: 065
  8. KLONOPIN [Concomitant]
     Active Substance: CLONAZEPAM
     Indication: ANXIETY
     Dosage: 1 TO 1.5MG QD
     Route: 055
  9. CRESTOR [Suspect]
     Active Substance: ROSUVASTATIN CALCIUM
     Indication: BLOOD CHOLESTEROL INCREASED
     Route: 048
     Dates: start: 201404
  10. OMEPRAZOLE. [Suspect]
     Active Substance: OMEPRAZOLE
     Indication: GASTROOESOPHAGEAL REFLUX DISEASE
     Route: 048
  11. EFFEXOR XR [Suspect]
     Active Substance: VENLAFAXINE HYDROCHLORIDE
     Indication: DEPRESSION
     Dosage: LONG TIME
     Route: 048
  12. CRESTOR [Suspect]
     Active Substance: ROSUVASTATIN CALCIUM
     Indication: BLOOD CHOLESTEROL INCREASED
     Route: 048
     Dates: start: 20140412
  13. ZESTRIL [Suspect]
     Active Substance: LISINOPRIL
     Route: 048
     Dates: start: 1998, end: 2013
  14. SULFA DRUG-UNSPECIFIED [Suspect]
     Active Substance: UNSPECIFIED INGREDIENT
     Route: 065
  15. ZANTAC [Concomitant]
     Active Substance: RANITIDINE HYDROCHLORIDE
     Indication: GASTROOESOPHAGEAL REFLUX DISEASE
     Route: 048
  16. ADVAIR HFA [Concomitant]
     Active Substance: FLUTICASONE PROPIONATE\SALMETEROL XINAFOATE
     Indication: ASTHMA
     Route: 055
     Dates: start: 1999
  17. ADVAIR HFA [Concomitant]
     Active Substance: FLUTICASONE PROPIONATE\SALMETEROL XINAFOATE
     Indication: ASTHMA
     Dosage: 50/250
     Route: 055

REACTIONS (21)
  - Adverse drug reaction [Unknown]
  - Hiatus hernia [Unknown]
  - Dehydration [Unknown]
  - Blood cholesterol increased [Unknown]
  - Blood pressure decreased [Unknown]
  - Lip swelling [Unknown]
  - Anxiety [Unknown]
  - Abdominal distension [Not Recovered/Not Resolved]
  - Cataract [Unknown]
  - Rosacea [Unknown]
  - Intentional product misuse [Unknown]
  - Stress [Unknown]
  - Gastrooesophageal reflux disease [Unknown]
  - Pollakiuria [Unknown]
  - Bronchitis [Unknown]
  - Pollakiuria [None]
  - Acne [Unknown]
  - Hyperhidrosis [Unknown]
  - Depression [Unknown]
  - Swollen tongue [Unknown]
  - Cataract [None]

NARRATIVE: CASE EVENT DATE: 2014
